FAERS Safety Report 19445747 (Version 2)
Quarter: 2021Q2

REPORT INFORMATION
  Report Type: Spontaneous
  Country: US (occurrence: US)
  Receive Date: 20210622
  Receipt Date: 20210625
  Transmission Date: 20210717
  Serious: No
  Sender: FDA-Public Use
  Company Number: US-GLAXOSMITHKLINE-US2021AMR127363

PATIENT
  Age: 62 Year
  Sex: Female

DRUGS (1)
  1. BREO ELLIPTA [Suspect]
     Active Substance: FLUTICASONE FUROATE\VILANTEROL TRIFENATATE
     Indication: ASTHMA
     Dosage: UNK
     Dates: start: 20190905, end: 20210606

REACTIONS (5)
  - Gastrooesophageal reflux disease [Recovered/Resolved]
  - Product administration interrupted [Unknown]
  - Pain [Unknown]
  - Off label use [Unknown]
  - Burning sensation [Unknown]

NARRATIVE: CASE EVENT DATE: 20210606
